FAERS Safety Report 20688193 (Version 1)
Quarter: 2022Q2

REPORT INFORMATION
  Report Type: Spontaneous
  Country: US (occurrence: None)
  Receive Date: 20220408
  Receipt Date: 20220408
  Transmission Date: 20220721
  Serious: No
  Sender: FDA-Public Use
  Company Number: 2022A138462

PATIENT
  Sex: Female
  Weight: 86.2 kg

DRUGS (1)
  1. BEVESPI AEROSPHERE [Suspect]
     Active Substance: FORMOTEROL FUMARATE\GLYCOPYRROLATE
     Indication: Chronic obstructive pulmonary disease
     Dosage: 9MCG/4.8MCG
     Route: 055

REACTIONS (4)
  - Device use issue [Unknown]
  - Feeling abnormal [Unknown]
  - Device issue [Unknown]
  - Device malfunction [Unknown]
